FAERS Safety Report 24731659 (Version 1)
Quarter: 2024Q4

REPORT INFORMATION
  Report Type: Spontaneous
  Country: US (occurrence: None)
  Receive Date: 20241213
  Receipt Date: 20241213
  Transmission Date: 20250115
  Serious: Yes (Hospitalization)
  Sender: Public
  Company Number: None

PATIENT
  Age: 67 Year
  Sex: Male
  Weight: 80 kg

DRUGS (5)
  1. DULOXETINE HYDROCHLORIDE [Suspect]
     Active Substance: DULOXETINE HYDROCHLORIDE
     Indication: Affective disorder
     Dosage: 90.00 MG DAILY ORAL
     Route: 048
  2. HYDROCHLOROTHIAZIDE\LOSARTAN POTASSIUM [Suspect]
     Active Substance: HYDROCHLOROTHIAZIDE\LOSARTAN POTASSIUM
     Indication: Hypertension
     Dosage: DAILY ORAL
     Route: 048
  3. NAPROXEN [Suspect]
     Active Substance: NAPROXEN
  4. MELOXICAM [Suspect]
     Active Substance: MELOXICAM
  5. TRAMADOL [Suspect]
     Active Substance: TRAMADOL

REACTIONS (10)
  - Hyponatraemia [None]
  - Nausea [None]
  - Vomiting [None]
  - Fall [None]
  - Disturbance in attention [None]
  - Arrhythmia [None]
  - Inappropriate antidiuretic hormone secretion [None]
  - Confusional state [None]
  - Anaemia [None]
  - Electrolyte imbalance [None]

NARRATIVE: CASE EVENT DATE: 20240802
